FAERS Safety Report 9913297 (Version 1)
Quarter: 2014Q1

REPORT INFORMATION
  Report Type: Spontaneous
  Country: US (occurrence: None)
  Receive Date: 20140214
  Receipt Date: 20140214
  Transmission Date: 20141002
  Serious: Yes (Hospitalization)
  Sender: FDA-Public Use
  Company Number: 2014AP001052

PATIENT
  Age: 72 Year
  Sex: Male

DRUGS (2)
  1. CLOPIDOGREL TABLETS [Suspect]
     Indication: CAROTID ENDARTERECTOMY
  2. ASPIRIN [Concomitant]

REACTIONS (2)
  - Pulmonary alveolar haemorrhage [None]
  - Diastolic dysfunction [None]
